FAERS Safety Report 9188664 (Version 3)
Quarter: 2013Q2

REPORT INFORMATION
  Report Type: Spontaneous
  Country: US (occurrence: US)
  Receive Date: 20130325
  Receipt Date: 20130411
  Transmission Date: 20140414
  Serious: No
  Sender: FDA-Public Use
  Company Number: US-009507513-1303USA011655

PATIENT
  Age: 17 Year
  Sex: Female
  Weight: 64.4 kg

DRUGS (1)
  1. NEXPLANON [Suspect]
     Indication: CONTRACEPTION
     Dosage: 1 ROD 3 YEAR
     Route: 059
     Dates: start: 20130315

REACTIONS (3)
  - Muscle twitching [Not Recovered/Not Resolved]
  - Implant site reaction [Not Recovered/Not Resolved]
  - Hypoaesthesia [Not Recovered/Not Resolved]
